FAERS Safety Report 5650398-1 (Version None)
Quarter: 2008Q1

REPORT INFORMATION
  Report Type: 
  Country: None (occurrence: None)
  Receive Date: 20080304
  Receipt Date: 20080304
  Transmission Date: 20080703
  Serious: Yes (Hospitalization)
  Sender: FDA-Public Use
  Company Number: None

PATIENT
  Age: 36 Year
  Sex: Female
  Weight: 90.7194 kg

DRUGS (1)
  1. MIRALAX [Suspect]
     Indication: ENDOSCOPY
     Dosage: 14 OZ  ONCE A DAY  PO
     Route: 048
     Dates: start: 20080302, end: 20080302

REACTIONS (12)
  - ANXIETY [None]
  - CONFUSIONAL STATE [None]
  - DYSPNOEA [None]
  - FEELING COLD [None]
  - FEELING HOT [None]
  - HYPERSENSITIVITY [None]
  - PAROSMIA [None]
  - PRURITUS [None]
  - SKIN BURNING SENSATION [None]
  - SOMNOLENCE [None]
  - UNEVALUABLE EVENT [None]
  - URTICARIA [None]
